FAERS Safety Report 21748780 (Version 1)
Quarter: 2022Q4

REPORT INFORMATION
  Report Type: Spontaneous
  Country: JP (occurrence: JP)
  Receive Date: 20221219
  Receipt Date: 20221219
  Transmission Date: 20230112
  Serious: Yes (Death)
  Sender: FDA-Public Use
  Company Number: JP-ELI_LILLY_AND_COMPANY-JP202212008189

PATIENT
  Age: 75 Year
  Sex: Male

DRUGS (4)
  1. PEMETREXED [Suspect]
     Active Substance: PEMETREXED
     Indication: Non-small cell lung cancer stage IV
     Dosage: UNK
     Route: 041
     Dates: start: 202106
  2. IPILIMUMAB [Suspect]
     Active Substance: IPILIMUMAB
     Indication: Non-small cell lung cancer stage IV
     Dosage: UNK
     Route: 065
     Dates: start: 202106
  3. NIVOLUMAB [Suspect]
     Active Substance: NIVOLUMAB
     Indication: Non-small cell lung cancer stage IV
     Dosage: UNK
     Route: 065
     Dates: start: 202106
  4. CARBOPLATIN [Concomitant]
     Active Substance: CARBOPLATIN
     Indication: Non-small cell lung cancer stage IV
     Dosage: UNK
     Dates: start: 202106

REACTIONS (4)
  - Immune-mediated myocarditis [Fatal]
  - Diverticulum intestinal haemorrhagic [Unknown]
  - Hypothyroidism [Unknown]
  - Pneumonia [Unknown]

NARRATIVE: CASE EVENT DATE: 20211001
